FAERS Safety Report 19664959 (Version 2)
Quarter: 2021Q3

REPORT INFORMATION
  Report Type: Spontaneous
  Country: US (occurrence: US)
  Receive Date: 20210806
  Receipt Date: 20210810
  Transmission Date: 20211014
  Serious: Yes (Hospitalization, Other)
  Sender: FDA-Public Use
  Company Number: US-CELGENEUS-USA-20210800477

PATIENT
  Age: 54 Year
  Sex: Female
  Weight: 76.27 kg

DRUGS (2)
  1. REVLIMID [Suspect]
     Active Substance: LENALIDOMIDE
     Indication: PLASMA CELL MYELOMA
     Dosage: 25 MILLIGRAM
     Route: 048
     Dates: start: 202107
  2. ASPIRIN. [Concomitant]
     Active Substance: ASPIRIN
     Indication: PRODUCT USED FOR UNKNOWN INDICATION
     Dosage: LOW DOSE
     Route: 065

REACTIONS (5)
  - Haemoglobin decreased [Unknown]
  - Confusional state [Unknown]
  - Hallucination [Unknown]
  - Chest pain [Unknown]
  - Dysarthria [Unknown]

NARRATIVE: CASE EVENT DATE: 202107
